FAERS Safety Report 4314476-1 (Version None)
Quarter: 2004Q1

REPORT INFORMATION
  Report Type: 
  Country: None (occurrence: None)
  Receive Date: 20040309
  Receipt Date: 20040227
  Transmission Date: 20041129
  Serious: Yes (Other)
  Sender: FDA-Public Use
  Company Number: PHBS2004TH02812

PATIENT
  Age: 30 Year
  Sex: Female

DRUGS (9)
  1. CYCLOSPORINE [Suspect]
     Indication: RENAL TRANSPLANT
     Dosage: 7 MG/KG/D
     Route: 065
  2. PREDNISOLONE [Suspect]
     Indication: RENAL TRANSPLANT
     Dosage: 10 MG, Q48H
     Route: 065
  3. AZATHIOPRINE [Suspect]
     Indication: RENAL TRANSPLANT
     Dosage: 50 MG/D
     Route: 065
  4. ENALAPRIL MALEATE [Concomitant]
     Dosage: 2.5 MG/D
  5. PRAZOSIN HYDROCHLORIDE [Concomitant]
     Dosage: 4 MG/D
  6. ATORVASTATIN CALCIUM [Concomitant]
     Dosage: 10 MG/D
  7. SODAMINT [Concomitant]
     Dosage: 2 DF, TID
  8. FERROUS SULFATE TAB [Concomitant]
     Dosage: 1 DF, TID
  9. KETOCONAZOLE [Concomitant]
     Dosage: 100 MG/D

REACTIONS (2)
  - ENDOMETRIOMA [None]
  - LAPAROSCOPIC SURGERY [None]
